FAERS Safety Report 7396358-4 (Version None)
Quarter: 2011Q2

REPORT INFORMATION
  Report Type: 
  Country: None (occurrence: None)
  Receive Date: 20110406
  Receipt Date: 20110330
  Transmission Date: 20111010
  Serious: Yes (Life-Threatening, Hospitalization, Other)
  Sender: FDA-Public Use
  Company Number: JP-AMGEN-JPNSP2011009053

PATIENT
  Age: 59 Year
  Sex: Male
  Weight: 69 kg

DRUGS (13)
  1. ALLEGRA                            /01314202/ [Concomitant]
     Indication: HYPERSENSITIVITY
     Dosage: 60 MG, 2X/DAY
     Route: 048
  2. ENBREL [Suspect]
     Indication: RHEUMATOID ARTHRITIS
     Dosage: 25 MG, 2X/WEEK
     Route: 058
     Dates: start: 20090227
  3. ENBREL [Suspect]
     Indication: PSORIASIS
     Dosage: 25 MG, WEEKLY
     Route: 058
     Dates: start: 20090324, end: 20110107
  4. VOLTAREN [Concomitant]
     Indication: ARTHRITIS
     Dosage: UNK UNK, PRN
     Route: 054
  5. ENBREL [Suspect]
     Indication: PSORIATIC ARTHROPATHY
     Dosage: 25 MG, WEEKLY
     Route: 058
     Dates: start: 20090313
  6. MUCODYNE [Concomitant]
     Indication: COUGH
     Dosage: 500 MG, 3X/DAY AFTER EACH MEAL
     Route: 048
  7. MUCOSOLVAN                         /00546002/ [Concomitant]
     Indication: COUGH
     Dosage: 15 MG, 3X/DAY
     Route: 048
  8. MUCOSOLVAN                         /00546002/ [Concomitant]
     Indication: PRODUCTIVE COUGH
  9. ACTONEL [Concomitant]
     Indication: OSTEOPOROSIS
     Dosage: 17.5 MG, WEEKLY AT WAKING UP IN THE MORNING
     Route: 048
  10. PREDONINE                          /00016201/ [Concomitant]
     Indication: INTERSTITIAL LUNG DISEASE
     Dosage: 5 MG, 1X/DAY
     Route: 048
  11. PREDONINE                          /00016201/ [Concomitant]
     Indication: PSORIASIS
  12. TAKEPRON [Concomitant]
     Indication: PROPHYLAXIS AGAINST GASTROINTESTINAL ULCER
     Dosage: 60 MG, 1X/DAY AFTER BREAKFAST
     Route: 048
  13. POLARAMINE                         /00043702/ [Concomitant]
     Indication: HYPERSENSITIVITY
     Dosage: 2 MG, 2X/DAY
     Route: 048

REACTIONS (2)
  - OSTEONECROSIS [None]
  - INTERSTITIAL LUNG DISEASE [None]
